FAERS Safety Report 14598995 (Version 1)
Quarter: 2018Q1

REPORT INFORMATION
  Report Type: Spontaneous
  Country: PT (occurrence: PT)
  Receive Date: 20180303
  Receipt Date: 20180303
  Transmission Date: 20180509
  Serious: Yes (Disabling)
  Sender: FDA-Public Use
  Company Number: None

PATIENT
  Age: 37 Year
  Sex: Male
  Weight: 52 kg

DRUGS (1)
  1. REMICADE [Suspect]
     Active Substance: INFLIXIMAB

REACTIONS (5)
  - Loss of personal independence in daily activities [None]
  - Tendon pain [None]
  - Arthritis [None]
  - Erythema [None]
  - Psoriasis [None]

NARRATIVE: CASE EVENT DATE: 20151001
